FAERS Safety Report 6629573-5 (Version None)
Quarter: 2010Q1

REPORT INFORMATION
  Report Type: 
  Country: None (occurrence: None)
  Receive Date: 20100311
  Receipt Date: 20100301
  Transmission Date: 20100710
  Serious: Yes (Death, Life-Threatening, Hospitalization, Other)
  Sender: FDA-Public Use
  Company Number: BG-PFIZER INC-2008086117

PATIENT
  Age: 72 Year
  Sex: Female
  Weight: 43 kg

DRUGS (13)
  1. SUNITINIB MALATE [Suspect]
     Indication: COLORECTAL CANCER
     Dosage: TDD 37.5 MG, 1X/DAY
     Route: 048
     Dates: start: 20080917, end: 20081011
  2. SUNITINIB MALATE [Suspect]
     Dosage: TDD 37.5 MG
     Dates: start: 20080817, end: 20081011
  3. IRINOTECAN HCL [Suspect]
     Indication: COLORECTAL CANCER
     Dosage: 246 MG, 1 EVERY 2 WEEKS
     Route: 042
     Dates: start: 20080917, end: 20081001
  4. *FLUOROURACIL [Suspect]
     Indication: COLORECTAL CANCER
     Dosage: 440 MG, DAILY; EVERY 2 WEEKS
     Route: 040
     Dates: start: 20080917, end: 20081001
  5. *FLUOROURACIL [Suspect]
     Dosage: 2630 MG, DAILY; EVERY 2 WEEKS
     Route: 042
     Dates: start: 20080917, end: 20081003
  6. CALCIUM FOLINATE [Suspect]
     Indication: COLORECTAL CANCER
     Dosage: 548 MG, DAILY; EVERY 2 WEEKS
     Route: 042
     Dates: start: 20080917, end: 20081001
  7. CONCOR [Concomitant]
     Indication: HYPERTENSION
     Dosage: 2.5 MG, 2X/DAY
     Dates: start: 20080808
  8. PAMATON [Concomitant]
     Indication: HYPERTENSION
     Dosage: 332/350 MG, 3X/DAY
     Dates: start: 20080808
  9. HYDROCHLOROTHIAZIDE [Concomitant]
     Indication: HYPERTENSION
     Dosage: 12.5 MG, 1X/DAY
     Dates: start: 20080808
  10. RAMIPRIL [Concomitant]
     Indication: HYPERTENSION
     Dosage: 5 MG, 1X/DAY
     Dates: start: 20080808
  11. ADEMETIONINE [Concomitant]
     Indication: METASTASES TO LIVER
     Dosage: 500 MG, 1X/DAY
     Dates: start: 20080809
  12. SILYMARIN [Concomitant]
     Indication: METASTASES TO LIVER
     Dosage: 140 MG, 3X/DAY
     Dates: start: 20080809
  13. GRANISETRON [Concomitant]
     Indication: NAUSEA
     Dosage: 3 MG, 1 EVERY 2 WEEKS
     Dates: start: 20080917

REACTIONS (4)
  - FEBRILE NEUTROPENIA [None]
  - LEUKOPENIA [None]
  - MUCOSAL INFLAMMATION [None]
  - THROMBOCYTOPENIA [None]
